FAERS Safety Report 9560923 (Version 1)
Quarter: 2013Q3

REPORT INFORMATION
  Report Type: Spontaneous
  Country: US (occurrence: US)
  Receive Date: 20130927
  Receipt Date: 20130927
  Transmission Date: 20140515
  Serious: No
  Sender: FDA-Public Use
  Company Number: US-BIOGENIDEC-2013BI055433

PATIENT
  Age: 65 Year
  Sex: Female

DRUGS (5)
  1. TECFIDERA [Suspect]
     Indication: MULTIPLE SCLEROSIS
     Route: 048
     Dates: start: 20130529
  2. IBUPROFEN [Concomitant]
  3. CLARITIN [Concomitant]
  4. BENADRYL [Concomitant]
  5. HYDROCODONE-ACETAMINOPHEN [Concomitant]

REACTIONS (1)
  - Pruritus generalised [Not Recovered/Not Resolved]
